FAERS Safety Report 21846863 (Version 1)
Quarter: 2023Q1

REPORT INFORMATION
  Report Type: Spontaneous
  Country: US (occurrence: None)
  Receive Date: 20230110
  Receipt Date: 20230110
  Transmission Date: 20230418
  Serious: Yes (Hospitalization)
  Sender: FDA-Public Use
  Company Number: None

PATIENT
  Age: 62 Year
  Sex: Female
  Weight: 85.3 kg

DRUGS (2)
  1. AZACITIDINE [Suspect]
     Active Substance: AZACITIDINE
     Dates: end: 20220307
  2. VENETOCLAX [Suspect]
     Active Substance: VENETOCLAX
     Dates: end: 20220325

REACTIONS (7)
  - Wheelchair user [None]
  - Oedema peripheral [None]
  - White blood cell count decreased [None]
  - Neutrophil count decreased [None]
  - Platelet count decreased [None]
  - Febrile neutropenia [None]
  - Stomatitis [None]

NARRATIVE: CASE EVENT DATE: 20220325
